FAERS Safety Report 18473046 (Version 1)
Quarter: 2020Q4

REPORT INFORMATION
  Report Type: Spontaneous
  Country: US (occurrence: US)
  Receive Date: 20201105
  Receipt Date: 20201105
  Transmission Date: 20210114
  Serious: Yes (Hospitalization)
  Sender: FDA-Public Use
  Company Number: None

PATIENT
  Age: 74 Year
  Sex: Female

DRUGS (1)
  1. HUMIRA [Suspect]
     Active Substance: ADALIMUMAB
     Indication: PSORIASIS
     Dosage: ?          OTHER FREQUENCY:Q2WK;  (1 PEN)?
     Route: 058
     Dates: start: 20191022

REACTIONS (2)
  - Therapy interrupted [None]
  - Surgery [None]

NARRATIVE: CASE EVENT DATE: 20201103
